FAERS Safety Report 15963118 (Version 1)
Quarter: 2019Q1

REPORT INFORMATION
  Report Type: Spontaneous
  Country: US (occurrence: US)
  Receive Date: 20190214
  Receipt Date: 20190214
  Transmission Date: 20190417
  Serious: No
  Sender: FDA-Public Use
  Company Number: US-ALLERGAN-1842166US

PATIENT
  Sex: Female

DRUGS (2)
  1. TAZORAC [Suspect]
     Active Substance: TAZAROTENE
     Indication: SCAR
     Dosage: UNK UNK, QHS
     Route: 065
     Dates: start: 201707
  2. TAZORAC [Suspect]
     Active Substance: TAZAROTENE
     Indication: SEBORRHOEA

REACTIONS (2)
  - Product container issue [Unknown]
  - Poor quality product administered [Unknown]

NARRATIVE: CASE EVENT DATE: 201808
